FAERS Safety Report 5213028-9 (Version None)
Quarter: 2007Q1

REPORT INFORMATION
  Report Type: 
  Country: None (occurrence: None)
  Receive Date: 20070117
  Receipt Date: 20070104
  Transmission Date: 20070707
  Serious: Yes (Hospitalization)
  Sender: FDA-Public Use
  Company Number: 2006S1000307

PATIENT
  Age: 73 Year
  Sex: Female
  Weight: 95.45 kg

DRUGS (6)
  1. CUBICIN [Suspect]
     Indication: CELLULITIS
     Dosage: 4 MG/KG;Q24
     Dates: start: 20060710, end: 20060728
  2. IMDUR [Concomitant]
  3. LOPRESSOR [Concomitant]
  4. LIPITOR [Concomitant]
  5. LORTAB [Concomitant]
  6. XANAX [Concomitant]

REACTIONS (6)
  - ABDOMINAL PAIN LOWER [None]
  - CLOSTRIDIUM DIFFICILE TOXIN TEST POSITIVE [None]
  - DEHYDRATION [None]
  - DIARRHOEA [None]
  - HYPOKALAEMIA [None]
  - NAUSEA [None]
